FAERS Safety Report 23471430 (Version 1)
Quarter: 2024Q1

REPORT INFORMATION
  Report Type: Spontaneous
  Country: US (occurrence: US)
  Receive Date: 20240202
  Receipt Date: 20240202
  Transmission Date: 20240410
  Serious: No
  Sender: FDA-Public Use
  Company Number: US-SANOFI-01916727

PATIENT
  Sex: Female

DRUGS (1)
  1. LANTUS SOLOSTAR [Suspect]
     Active Substance: INSULIN GLARGINE
     Indication: Diabetes mellitus
     Dosage: 20 IU QD AND DRUG TREATMENT DURATION:ABOUT 6 MONTHS
     Dates: start: 2023

REACTIONS (3)
  - Illness [Unknown]
  - Cough [Unknown]
  - Product dispensing error [Unknown]
